FAERS Safety Report 8576579-5 (Version None)
Quarter: 2012Q3

REPORT INFORMATION
  Report Type: 
  Country: None (occurrence: None)
  Receive Date: 20120807
  Receipt Date: 20120723
  Transmission Date: 20120928
  Serious: Yes (Death)
  Sender: FDA-Public Use
  Company Number: US-ARROW-2012-13057

PATIENT
  Sex: Female

DRUGS (4)
  1. NORTRIPTYLINE HCL [Suspect]
     Indication: HERPES ZOSTER
     Dosage: 25 MG
     Route: 065
  2. IBUPROFEN [Suspect]
     Indication: HERPES ZOSTER
     Dosage: 800 MG
     Route: 065
  3. HYDROCODONE BITARTRATE AND ACETAMINOPHEN [Suspect]
     Indication: HERPES ZOSTER
     Dosage: 500 MG
     Route: 065
  4. GABAPENTIN [Suspect]
     Indication: HERPES ZOSTER
     Dosage: 600 MG
     Route: 065

REACTIONS (1)
  - COMPLETED SUICIDE [None]
